FAERS Safety Report 9477835 (Version 1)
Quarter: 2013Q3

REPORT INFORMATION
  Report Type: Spontaneous
  Country: US (occurrence: None)
  Receive Date: 20130826
  Receipt Date: 20130826
  Transmission Date: 20140515
  Serious: Yes (Other)
  Sender: FDA-Public Use
  Company Number: None

PATIENT
  Age: 42 Year
  Sex: Female
  Weight: 49.9 kg

DRUGS (1)
  1. KENALOG [Suspect]
     Indication: RASH
     Dosage: 1X ONLY

REACTIONS (1)
  - Injection site atrophy [None]
